FAERS Safety Report 5320028-7 (Version None)
Quarter: 2007Q2

REPORT INFORMATION
  Report Type: 
  Country: None (occurrence: None)
  Receive Date: 20070509
  Receipt Date: 20070502
  Transmission Date: 20071010
  Serious: Yes (Other)
  Sender: FDA-Public Use
  Company Number: US-ASTRAZENECA-2007UW06019

PATIENT
  Age: 15208 Day
  Sex: Male

DRUGS (3)
  1. SEROQUEL [Suspect]
     Indication: DEPRESSION
     Route: 048
     Dates: start: 20000701
  2. SEROQUEL [Suspect]
     Indication: SCHIZOPHRENIA
     Route: 048
     Dates: start: 20000701
  3. RISPERDAL [Suspect]
     Dates: start: 19990401, end: 20030801

REACTIONS (2)
  - DIABETIC KETOACIDOSIS [None]
  - NEUROPATHY [None]
